FAERS Safety Report 4314517-1 (Version None)
Quarter: 2004Q1

REPORT INFORMATION
  Report Type: 
  Country: None (occurrence: None)
  Receive Date: 20040308
  Receipt Date: 20040223
  Transmission Date: 20041129
  Serious: Yes (Other)
  Sender: FDA-Public Use
  Company Number: 000881

PATIENT
  Age: 56 Year
  Sex: Female
  Weight: 70.3 kg

DRUGS (3)
  1. CENESTIN [Suspect]
     Indication: MENOPAUSAL SYMPTOMS
     Dosage: 1.00 TABLET, QD, ORAL
     Route: 048
     Dates: start: 20010101
  2. AZMACORT [Concomitant]
  3. PROVENTIL/USA/ (SALBUTAMOL SULFATE) [Concomitant]

REACTIONS (3)
  - BLOOD CHOLESTEROL INCREASED [None]
  - BLOOD POTASSIUM DECREASED [None]
  - PANCREATITIS ACUTE [None]
